FAERS Safety Report 4840480-0 (Version None)
Quarter: 2005Q4

REPORT INFORMATION
  Report Type: 
  Country: None (occurrence: None)
  Receive Date: 20051130
  Receipt Date: 20050801
  Transmission Date: 20060501
  Serious: Yes (Hospitalization)
  Sender: FDA-Public Use
  Company Number: US-BRISTOL-MYERS SQUIBB COMPANY-13061973

PATIENT
  Age: 59 Year
  Sex: Male

DRUGS (12)
  1. ERBITUX [Suspect]
     Indication: COLON CANCER
     Dosage: LOAD DOSE, 800 MG. REC'D 11 ML.
     Route: 042
     Dates: start: 20050727, end: 20050727
  2. ERBITUX [Suspect]
     Indication: METASTASES TO LIVER
     Dosage: LOAD DOSE, 800 MG. REC'D 11 ML.
     Route: 042
     Dates: start: 20050727, end: 20050727
  3. ERBITUX [Suspect]
     Indication: METASTASES TO LUNG
     Dosage: LOAD DOSE, 800 MG. REC'D 11 ML.
     Route: 042
     Dates: start: 20050727, end: 20050727
  4. BENADRYL [Concomitant]
     Indication: PREMEDICATION
     Route: 042
     Dates: start: 20050727, end: 20050727
  5. IRINOTECAN HCL [Concomitant]
     Route: 042
  6. ATROPINE [Concomitant]
     Route: 058
  7. DECADRON [Concomitant]
     Route: 042
  8. ALOXI [Concomitant]
     Route: 042
  9. PRAVACHOL [Concomitant]
     Route: 048
  10. VITAMIN CAP [Concomitant]
     Route: 048
  11. COUMADIN [Concomitant]
     Indication: DEEP VEIN THROMBOSIS
     Dosage: ADMINISTERED AS DIRECTED
     Route: 048
  12. CHONDROITIN SULFATE + GLUCOSAMINE [Concomitant]

REACTIONS (1)
  - INFUSION RELATED REACTION [None]
